FAERS Safety Report 20950950 (Version 1)
Quarter: 2022Q2

REPORT INFORMATION
  Report Type: Spontaneous
  Country: US (occurrence: None)
  Receive Date: 20220610
  Receipt Date: 20220610
  Transmission Date: 20220721
  Serious: Yes (Disabling, Other)
  Sender: FDA-Public Use
  Company Number: None

PATIENT
  Age: 43 Year
  Sex: Female
  Weight: 81.45 kg

DRUGS (11)
  1. AJOVY [Suspect]
     Active Substance: FREMANEZUMAB-VFRM
     Indication: Migraine
     Dosage: OTHER QUANTITY : 1 INJECTION(S);?OTHER FREQUENCY : ONCE A MONTH;?
     Route: 030
     Dates: start: 20220608, end: 20220609
  2. PLAQUENIL [Concomitant]
     Active Substance: HYDROXYCHLOROQUINE SULFATE
  3. PREDNISONE [Concomitant]
     Active Substance: PREDNISONE
  4. AMBIEN [Concomitant]
     Active Substance: ZOLPIDEM TARTRATE
  5. LAMOTRIGINE [Concomitant]
     Active Substance: LAMOTRIGINE
  6. PERCOCET [Concomitant]
     Active Substance: ACETAMINOPHEN\OXYCODONE HYDROCHLORIDE
  7. tinzidine (rarely) [Concomitant]
  8. synthroid. 81mg asa [Concomitant]
  9. BENLYSTA [Concomitant]
     Active Substance: BELIMUMAB
  10. Vit D 50k/week [Concomitant]
  11. VITAMINS [Concomitant]
     Active Substance: VITAMINS

REACTIONS (7)
  - Injection site pruritus [None]
  - Injection site urticaria [None]
  - Systemic lupus erythematosus [None]
  - Impaired work ability [None]
  - Fatigue [None]
  - Arthralgia [None]
  - Myalgia [None]

NARRATIVE: CASE EVENT DATE: 20220608
